FAERS Safety Report 21574408 (Version 1)
Quarter: 2022Q4

REPORT INFORMATION
  Report Type: Spontaneous
  Country: US (occurrence: None)
  Receive Date: 20221108
  Receipt Date: 20221108
  Transmission Date: 20230113
  Serious: Yes (Hospitalization)
  Sender: FDA-Public Use
  Company Number: None

PATIENT
  Age: 90 Year
  Sex: Male
  Weight: 67.77 kg

DRUGS (21)
  1. LENALIDOMIDE [Suspect]
     Active Substance: LENALIDOMIDE
     Indication: Plasma cell myeloma
     Dosage: OTHER FREQUENCY : 3W, 1W OFF;?
     Route: 048
  2. BASAGLAR KWIKPEN [Concomitant]
     Active Substance: INSULIN GLARGINE
  3. CALCIUM\CHOLECALCIFEROL [Concomitant]
     Active Substance: CALCIUM\CHOLECALCIFEROL
  4. CRANBERRY FRUIT [Concomitant]
  5. DECADRON [Concomitant]
     Active Substance: DEXAMETHASONE
  6. DIGOXIN [Concomitant]
     Active Substance: DIGOXIN
  7. DORZOLAMIDE HCL-TIMOLOL MAL [Concomitant]
  8. ELIQUIS [Concomitant]
     Active Substance: APIXABAN
  9. FERROUS SULFATE [Concomitant]
     Active Substance: FERROUS SULFATE
  10. FINASTERIDE [Concomitant]
     Active Substance: FINASTERIDE
  11. FISH OIL [Concomitant]
     Active Substance: FISH OIL
  12. FUROSEMIDE [Concomitant]
     Active Substance: FUROSEMIDE
  13. GLUCOSAMINE [Concomitant]
     Active Substance: GLUCOSAMINE
  14. LANTUS SOLOSTAR [Concomitant]
     Active Substance: INSULIN GLARGINE
  15. MULT FOR HIM 50+ [Concomitant]
  16. OMEPRAZOLE [Concomitant]
     Active Substance: OMEPRAZOLE
  17. POTASSIUM CITRATE [Concomitant]
     Active Substance: POTASSIUM CITRATE
  18. PROLENSA OPHTHALMIC SOLUTION [Concomitant]
  19. TRAMADOL HCL [Concomitant]
     Active Substance: TRAMADOL HYDROCHLORIDE
  20. TRAVATAN Z [Concomitant]
     Active Substance: TRAVOPROST
  21. XALATAN [Concomitant]
     Active Substance: LATANOPROST

REACTIONS (3)
  - Loss of control of legs [None]
  - Bladder disorder [None]
  - Bone neoplasm [None]
